FAERS Safety Report 17236406 (Version 1)
Quarter: 2020Q1

REPORT INFORMATION
  Report Type: Spontaneous
  Country: FR (occurrence: FR)
  Receive Date: 20200106
  Receipt Date: 20200106
  Transmission Date: 20200409
  Serious: Yes (Hospitalization, Congenital Anomaly, Other)
  Sender: FDA-Public Use
  Company Number: FR-PFIZER INC-2019561138

PATIENT
  Sex: Male

DRUGS (18)
  1. LEVETIRACETAM. [Suspect]
     Active Substance: LEVETIRACETAM
     Dosage: 3 IN THE MORNING AND IN THE EVENING
     Route: 064
     Dates: start: 20110526, end: 20110802
  2. ASPEGIC [ACETYLSALICYLATE LYSINE] [Suspect]
     Active Substance: ASPIRIN DL-LYSINE
     Dosage: UNK, DAILY(1 PER DAY)
     Route: 064
     Dates: start: 20110526, end: 20110802
  3. SPECIAFOLDINE [Concomitant]
     Active Substance: FOLIC ACID
     Dosage: 2 IN THE MORNING AND IN THE EVENING
     Route: 064
     Dates: start: 20110105, end: 20110202
  4. ASPEGIC [ACETYLSALICYLATE LYSINE] [Suspect]
     Active Substance: ASPIRIN DL-LYSINE
     Dosage: UNK, DAILY(1 PER DAY)
     Route: 064
     Dates: start: 20110301, end: 20110526
  5. URBANYL [Suspect]
     Active Substance: CLOBAZAM
     Dosage: UNK, DAILY(1 IN THE MORNING)
     Route: 064
     Dates: start: 20110105, end: 20110202
  6. ASPEGIC [ACETYLSALICYLATE LYSINE] [Suspect]
     Active Substance: ASPIRIN DL-LYSINE
     Dosage: UNK, DAILY(1 AT LUNCH)
     Route: 064
     Dates: start: 20110202, end: 20110301
  7. DEPAKINE CHRONO [Suspect]
     Active Substance: VALPROATE SODIUM
     Dosage: UNK, DAILY(1 IN THE EVENING)
     Route: 064
     Dates: start: 20110301, end: 20110526
  8. SPECIAFOLDINE [Concomitant]
     Active Substance: FOLIC ACID
     Dosage: 5 MG, 1X/DAY
     Route: 064
     Dates: start: 20110526, end: 20110802
  9. LEVETIRACETAM. [Suspect]
     Active Substance: LEVETIRACETAM
     Dosage: UNK, 2X/DAY(2 WITH UNKNOWN DOSE UNITS 2 TIMES DAILY)
     Route: 064
     Dates: start: 20110105, end: 20110202
  10. SPECIAFOLDINE [Concomitant]
     Active Substance: FOLIC ACID
     Dosage: 1 IN THE MORNING AND IN THE EVENING
     Route: 064
     Dates: start: 20110202, end: 20110301
  11. LEVETIRACETAM. [Suspect]
     Active Substance: LEVETIRACETAM
     Dosage: 1 IN THE MORNING AND 2 IN THE EVENING THEN 1 IN THE MORNING AND IN THE EVENING
     Route: 064
     Dates: start: 20110202, end: 20110301
  12. LEVETIRACETAM. [Suspect]
     Active Substance: LEVETIRACETAM
     Dosage: 3 IN THE MORNING AND IN THE EVENING
     Route: 064
     Dates: start: 20110301, end: 20110526
  13. DEPAKINE CHRONO [Suspect]
     Active Substance: VALPROATE SODIUM
     Dosage: UNK
     Route: 064
     Dates: start: 201012, end: 20110802
  14. DEPAKINE CHRONO [Suspect]
     Active Substance: VALPROATE SODIUM
     Dosage: 1 ,5 TABLETS IN THE MORNING AND 2 IN THE EVENING DURING 5 DAYS ; 1,5 TABLETS IN THE MORNING AND 1
     Route: 064
     Dates: start: 20110105, end: 20110202
  15. URBANYL [Suspect]
     Active Substance: CLOBAZAM
     Dosage: UNK, DAILY (1 IN THE MORNING AND 0.5 IN THE EVENING)
     Route: 064
     Dates: start: 20110202, end: 20110301
  16. URBANYL [Suspect]
     Active Substance: CLOBAZAM
     Dosage: UNK, DAILY (1 IN THE EVENING)
     Route: 064
     Dates: start: 20110301, end: 20110526
  17. URBANYL [Suspect]
     Active Substance: CLOBAZAM
     Dosage: UNK, DAILY(1 IN THE MORNING AND 0.5 IN THE EVENING)
     Route: 064
     Dates: start: 20110526, end: 20110802
  18. DEPAKINE CHRONO [Suspect]
     Active Substance: VALPROATE SODIUM
     Dosage: PROGRESSIVE DIMINUTION
     Route: 064
     Dates: start: 20110202, end: 20110301

REACTIONS (46)
  - Maternal exposure timing unspecified [Unknown]
  - Bronchiolitis [Unknown]
  - Clonic convulsion [Unknown]
  - Congenital hand malformation [Unknown]
  - Fall [Unknown]
  - Disturbance in attention [Unknown]
  - Learning disorder [Unknown]
  - Impulsive behaviour [Unknown]
  - Motor developmental delay [Unknown]
  - Intellectual disability [Unknown]
  - Dysmorphism [Unknown]
  - Nervousness [Unknown]
  - Ear malformation [Unknown]
  - Psychomotor hyperactivity [Unknown]
  - Hand-eye coordination impaired [Unknown]
  - Irritability [Unknown]
  - Neonatal respiratory distress syndrome [Unknown]
  - Autism spectrum disorder [Unknown]
  - Regurgitation [Unknown]
  - Malaise [Unknown]
  - Behaviour disorder [Unknown]
  - Nasopharyngitis [Unknown]
  - Aggression [Unknown]
  - Head injury [Unknown]
  - School refusal [Unknown]
  - Presyncope [Unknown]
  - Abnormal behaviour [Unknown]
  - Bronchitis [Unknown]
  - Syncope [Unknown]
  - Arthropathy [Unknown]
  - Cognitive disorder [Unknown]
  - Frustration tolerance decreased [Unknown]
  - Psychomotor retardation [Unknown]
  - Dysgraphia [Unknown]
  - Attention deficit/hyperactivity disorder [Unknown]
  - Cardiac murmur functional [Unknown]
  - Vomiting [Unknown]
  - Tracheitis [Unknown]
  - Congenital infection [Unknown]
  - Foetal anticonvulsant syndrome [Unknown]
  - Speech disorder developmental [Unknown]
  - Joint laxity [Unknown]
  - Epilepsy [Unknown]
  - Dyspraxia [Unknown]
  - Anger [Unknown]
  - Laryngitis [Unknown]

NARRATIVE: CASE EVENT DATE: 20110911
